FAERS Safety Report 5191114-X (Version None)
Quarter: 2006Q4

REPORT INFORMATION
  Report Type: 
  Country: None (occurrence: None)
  Receive Date: 20061226
  Receipt Date: 20061215
  Transmission Date: 20070319
  Serious: Yes (Other)
  Sender: FDA-Public Use
  Company Number: PHNU2006DE04248

PATIENT
  Age: 54 Year
  Sex: Male

DRUGS (3)
  1. ATORVASTATIN CALCIUM [Concomitant]
  2. BELOC-ZOK [Concomitant]
  3. LAMISIL [Suspect]
     Indication: NAIL TINEA
     Dosage: 1 DF, QD
     Route: 048

REACTIONS (3)
  - DEPRESSION [None]
  - NIGHT SWEATS [None]
  - RESTLESSNESS [None]
